FAERS Safety Report 18654191 (Version 1)
Quarter: 2020Q4

REPORT INFORMATION
  Report Type: Spontaneous
  Country: CA (occurrence: CA)
  Receive Date: 20201223
  Receipt Date: 20201223
  Transmission Date: 20210114
  Serious: Yes (Hospitalization, Other)
  Sender: FDA-Public Use
  Company Number: CA-ELI_LILLY_AND_COMPANY-CA202012009476

PATIENT
  Age: 52 Year
  Sex: Female

DRUGS (6)
  1. DULOXETINE HYDROCHLORIDE. [Suspect]
     Active Substance: DULOXETINE HYDROCHLORIDE
     Dosage: 30 MG, OTHER (EVERY OTHER DAY)
     Route: 065
  2. XYLOMETAZOLINE [Suspect]
     Active Substance: XYLOMETAZOLINE
     Dosage: 1 DOSAGE FORM, OTHER (TWO-THREE TIMES DAILY)
     Route: 045
  3. DULOXETINE HYDROCHLORIDE. [Suspect]
     Active Substance: DULOXETINE HYDROCHLORIDE
     Indication: SCIATICA
     Dosage: 60 MG, DAILY
     Route: 065
  4. XYLOMETAZOLINE [Suspect]
     Active Substance: XYLOMETAZOLINE
     Indication: NASAL CONGESTION
     Dosage: 1 DOSAGE FORM, DAILY
     Route: 045
  5. SALBUTAMOL [Concomitant]
     Active Substance: ALBUTEROL
     Indication: PRODUCT USED FOR UNKNOWN INDICATION
     Dosage: UNK, PRN
     Route: 065
  6. BUDESONIDE;FORMOTEROL [Concomitant]
     Active Substance: BUDESONIDE\FORMOTEROL
     Indication: PRODUCT USED FOR UNKNOWN INDICATION
     Dosage: UNK, UNKNOWN
     Route: 055

REACTIONS (10)
  - Reversible cerebral vasoconstriction syndrome [Recovering/Resolving]
  - Hypertension [Recovered/Resolved]
  - Nasal septum deviation [Unknown]
  - Rhinorrhoea [Unknown]
  - Cerebral artery stenosis [Recovering/Resolving]
  - Allergy to animal [Unknown]
  - Nasal turbinate hypertrophy [Unknown]
  - Nasal mucosal disorder [Unknown]
  - Subarachnoid haemorrhage [Recovered/Resolved]
  - Rebound nasal congestion [Unknown]
